FAERS Safety Report 6756881-X (Version None)
Quarter: 2010Q2

REPORT INFORMATION
  Report Type: 
  Country: None (occurrence: None)
  Receive Date: 20100604
  Receipt Date: 20100602
  Transmission Date: 20101027
  Serious: Yes (Death, Hospitalization)
  Sender: FDA-Public Use
  Company Number: IT-SANOFI-AVENTIS-2010SA031685

PATIENT
  Age: 69 Year
  Sex: Male

DRUGS (3)
  1. OXALIPLATIN [Suspect]
     Indication: GASTRIC CANCER
     Route: 041
     Dates: end: 20100430
  2. CAPECITABINE [Suspect]
     Indication: GASTRIC CANCER
     Route: 048
     Dates: end: 20100430
  3. LAPATINIB [Suspect]
     Indication: GASTRIC CANCER
     Route: 048
     Dates: end: 20100430

REACTIONS (3)
  - OEDEMA PERIPHERAL [None]
  - OLIGURIA [None]
  - PNEUMONIA ASPIRATION [None]
